FAERS Safety Report 4538079-9 (Version None)
Quarter: 2004Q4

REPORT INFORMATION
  Report Type: 
  Country: None (occurrence: None)
  Receive Date: 20041221
  Receipt Date: 20041126
  Transmission Date: 20050328
  Serious: Yes (Hospitalization)
  Sender: FDA-Public Use
  Company Number: 2004243092NL

PATIENT
  Age: 48 Year
  Sex: Male
  Weight: 84 kg

DRUGS (3)
  1. XALATAN [Suspect]
     Indication: OPEN ANGLE GLAUCOMA
     Dosage: (DAILY), OPHTHALMIC
     Route: 047
     Dates: start: 20011109, end: 20011219
  2. PRAVASTATIN SODIUM [Concomitant]
  3. OMEPRAZOLE [Concomitant]

REACTIONS (4)
  - ANGINA UNSTABLE [None]
  - ATRIOVENTRICULAR BLOCK FIRST DEGREE [None]
  - CARDIAC DISORDER [None]
  - ELECTROCARDIOGRAM T WAVE INVERSION [None]
